FAERS Safety Report 14744231 (Version 1)
Quarter: 2018Q2

REPORT INFORMATION
  Report Type: Spontaneous
  Country: US (occurrence: US)
  Receive Date: 20180405
  Receipt Date: 20180405
  Transmission Date: 20180711
  Serious: Yes (Hospitalization)
  Sender: FDA-Public Use
  Company Number: None

PATIENT
  Age: 61 Year
  Sex: Female
  Weight: 145.2 kg

DRUGS (14)
  1. ATORVASTATIN 80 MG PO DAILY [Concomitant]
     Dates: start: 20140710
  2. BUPROPION XL 150 MG PO DAILY [Concomitant]
     Dates: start: 20171002
  3. LEVOTHYROXINE 200 MCG PO DAILY [Concomitant]
     Dates: start: 20140615
  4. METFORMIN ER 1000 MG PO BID [Concomitant]
     Dates: start: 20140526
  5. INSULIN DEGLUDEC 52 UNITS SQ QAM [Concomitant]
     Dates: start: 20170317
  6. ASPIRIN 162 MG PO DAILY [Concomitant]
     Dates: start: 20091011
  7. DULOXETINE 60 MG PO DAILY [Concomitant]
     Dates: start: 20140812
  8. INSULIN ASPART 30 UNITS SQ QAM [Concomitant]
     Dates: start: 20150304
  9. HYDROCHLOROTHIAZIDE 25 MG PO DAILY [Concomitant]
     Dates: start: 20150930
  10. EMPAGLIFLOZIN [Suspect]
     Active Substance: EMPAGLIFLOZIN
     Indication: TYPE 2 DIABETES MELLITUS
     Route: 048
     Dates: start: 20151014, end: 20171108
  11. LIRAGLUTIDE 3 MG SQ DAILY [Concomitant]
     Dates: start: 20140709
  12. LISINOPRIL 10 MG PO DAILY [Concomitant]
     Dates: start: 20150930
  13. EZETIMIBE 10 MG PO DAILY [Concomitant]
     Dates: start: 20140812
  14. PANTOPRAZOLE DR 40 MG PO DAILY [Concomitant]
     Dates: start: 20160305

REACTIONS (10)
  - Haemodialysis [None]
  - Nausea [None]
  - Metabolic acidosis [None]
  - Back pain [None]
  - Decreased appetite [None]
  - Deep vein thrombosis [None]
  - Vomiting [None]
  - Abdominal pain [None]
  - Ketoacidosis [None]
  - Wound infection [None]

NARRATIVE: CASE EVENT DATE: 20171108
